FAERS Safety Report 5164649-3 (Version None)
Quarter: 2006Q4

REPORT INFORMATION
  Report Type: 
  Country: None (occurrence: None)
  Receive Date: 20061205
  Receipt Date: 20060727
  Transmission Date: 20070319
  Serious: Yes (Hospitalization)
  Sender: FDA-Public Use
  Company Number: US-ELI_LILLY_AND_COMPANY-US200607005234

PATIENT
  Age: 70 Year
  Sex: Female
  Weight: 47.619 kg

DRUGS (1)
  1. FORTEO [Suspect]
     Indication: OSTEOPOROSIS
     Dates: start: 20041201, end: 20060711

REACTIONS (3)
  - ADNEXA UTERI CYST [None]
  - BONE DENSITY DECREASED [None]
  - ENDOMETRIAL HYPERPLASIA [None]
